FAERS Safety Report 8082262-5 (Version None)
Quarter: 2012Q1

REPORT INFORMATION
  Report Type: 
  Country: None (occurrence: None)
  Receive Date: 20120127
  Receipt Date: 20110214
  Transmission Date: 20120608
  Serious: No
  Sender: FDA-Public Use
  Company Number: US-ABBOTT-11P-163-0705388-00

PATIENT
  Age: 53 Year
  Sex: Female

DRUGS (3)
  1. FRAGMIN [Concomitant]
     Indication: THROMBOSIS
     Dosage: BLOOD THINNER
  2. CARDIZEM CD [Concomitant]
     Indication: HYPERTENSION
     Dosage: 240 MG. DAILY
  3. HUMIRA [Suspect]
     Indication: RHEUMATOID ARTHRITIS
     Dates: start: 20040101

REACTIONS (4)
  - HYPOKINESIA [None]
  - ARTHRALGIA [None]
  - RHEUMATOID ARTHRITIS [None]
  - JOINT STIFFNESS [None]
